FAERS Safety Report 4870610-6 (Version None)
Quarter: 2005Q4

REPORT INFORMATION
  Report Type: 
  Country: None (occurrence: None)
  Receive Date: 20051228
  Receipt Date: 20051219
  Transmission Date: 20060501
  Serious: Yes (Hospitalization)
  Sender: FDA-Public Use
  Company Number: 2005PV005975

PATIENT
  Age: 59 Year
  Sex: Female

DRUGS (4)
  1. BYETTA [Suspect]
     Indication: DIABETES MELLITUS NON-INSULIN-DEPENDENT
     Dosage: 5 MCG; BID; SC
     Route: 058
     Dates: start: 20051115, end: 20051101
  2. METFORMIN [Concomitant]
  3. AVANDIA [Concomitant]
  4. HUMALOG MIX 75/25 [Concomitant]

REACTIONS (2)
  - INJECTION SITE REACTION [None]
  - VOMITING [None]
